FAERS Safety Report 7688443-4 (Version None)
Quarter: 2011Q3

REPORT INFORMATION
  Report Type: 
  Country: None (occurrence: None)
  Receive Date: 20110817
  Receipt Date: 20110809
  Transmission Date: 20111222
  Serious: Yes (Hospitalization)
  Sender: FDA-Public Use
  Company Number: CA-ROCHE-796213

PATIENT
  Sex: Female

DRUGS (6)
  1. TOCILIZUMAB [Suspect]
     Dosage: LOWERED DOSE. FREQ: Q4 WEEKS. FORM: INFUSION.
     Route: 042
     Dates: start: 20110707, end: 20110707
  2. FOLIC ACID [Concomitant]
  3. TOCILIZUMAB [Suspect]
     Indication: RHEUMATOID ARTHRITIS
     Dosage: FREQ: Q4 WEEKS. FORM: INFUSION.
     Route: 042
     Dates: start: 20101228, end: 20101228
  4. METHOTREXATE [Concomitant]
  5. DICLOFENAC SODIUM [Concomitant]
  6. FENTANYL [Concomitant]

REACTIONS (1)
  - WOUND DEHISCENCE [None]
